FAERS Safety Report 10224097 (Version 1)
Quarter: 2014Q2

REPORT INFORMATION
  Report Type: Spontaneous
  Country: US (occurrence: US)
  Receive Date: 20140609
  Receipt Date: 20140609
  Transmission Date: 20141212
  Serious: Yes (Disabling, Other)
  Sender: FDA-Public Use
  Company Number: US-TEVA-485566USA

PATIENT
  Sex: Male

DRUGS (1)
  1. PARAGARD 380A [Suspect]
     Route: 065
     Dates: start: 200901

REACTIONS (2)
  - Cognitive disorder [Unknown]
  - Developmental delay [Unknown]
